FAERS Safety Report 7967999-8 (Version None)
Quarter: 2011Q4

REPORT INFORMATION
  Report Type: 
  Country: None (occurrence: None)
  Receive Date: 20111209
  Receipt Date: 20111205
  Transmission Date: 20120403
  Serious: Yes (Hospitalization)
  Sender: FDA-Public Use
  Company Number: KR-SANOFI-AVENTIS-2011SA079843

PATIENT
  Age: 71 Year
  Sex: Male

DRUGS (1)
  1. ALFUZOSIN HYDROCHLORIDE [Suspect]
     Route: 048
     Dates: start: 20090824

REACTIONS (2)
  - APPENDICITIS [None]
  - PSEUDOMEMBRANOUS COLITIS [None]
